FAERS Safety Report 6573416-5 (Version None)
Quarter: 2010Q1

REPORT INFORMATION
  Report Type: 
  Country: None (occurrence: None)
  Receive Date: 20100208
  Receipt Date: 20100201
  Transmission Date: 20100710
  Serious: Yes (Death, Hospitalization)
  Sender: FDA-Public Use
  Company Number: US-WYE-H11953809

PATIENT
  Sex: Female
  Weight: 63.11 kg

DRUGS (9)
  1. PRISTIQ [Suspect]
     Indication: DEPRESSION
     Route: 048
     Dates: start: 20090814
  2. PRISTIQ [Suspect]
     Indication: ANXIETY
  3. PREVACID [Concomitant]
     Indication: GASTROOESOPHAGEAL REFLUX DISEASE
  4. ATENOLOL [Concomitant]
     Indication: WOLFF-PARKINSON-WHITE SYNDROME
  5. TRICOR [Concomitant]
     Dates: start: 20080401
  6. IBUPROFEN [Concomitant]
     Indication: FIBROMYALGIA
     Dosage: 600 MG, PRN
  7. ENALAPRIL MALEATE [Concomitant]
  8. SERTRALINE HCL [Concomitant]
     Indication: DEPRESSION
     Dates: start: 20080630
  9. FOSAMAX PLUS D [Concomitant]
     Indication: OSTEOPOROSIS
     Dosage: 70/2800 1 Q WK
     Dates: start: 20071101

REACTIONS (2)
  - CEREBROVASCULAR ACCIDENT [None]
  - LOSS OF CONSCIOUSNESS [None]
